FAERS Safety Report 8343217-6 (Version None)
Quarter: 2012Q2

REPORT INFORMATION
  Report Type: 
  Country: None (occurrence: None)
  Receive Date: 20120504
  Receipt Date: 20120504
  Transmission Date: 20120825
  Serious: Yes (Life-Threatening, Hospitalization)
  Sender: FDA-Public Use
  Company Number: None

PATIENT
  Age: 84 Year
  Sex: Female
  Weight: 106.1417 kg

DRUGS (9)
  1. ROMIPLOSTIN 500 MCG SUBQ INJ [Suspect]
     Dosage: 500 MCG SUBQ INJ
     Route: 058
     Dates: start: 20120501
  2. ROMIPLOSTIN 210 MCG SUBQ INJ [Suspect]
     Dosage: 210 MCG WEEKLY SUBCUTANEOUS INJECTION
     Route: 058
     Dates: start: 20120220
  3. ROMIPLOSTIN 250 MCG AMGEN [Suspect]
     Indication: THROMBOCYTOPENIA
     Dosage: 110 MCG ONCE SUBCUTANEOUS INJECTION (057)
     Route: 058
     Dates: start: 20120207, end: 20120501
  4. ROMIPLOSTIN 500 MCG SUBQ INJ [Suspect]
     Dosage: ROMIPLOSTIN 500 MCG SUBQ INJ ^057^
     Route: 058
     Dates: start: 20120313
  5. ROMIPLOSTIN 500 MCG SUBQ INJ [Suspect]
     Dosage: ROMIPLOSTIN 500 MCG SUBQ INJ
     Route: 058
     Dates: start: 20120320
  6. ROMIPLOSTIN 500 MCG SUBQ INJ [Suspect]
     Dosage: ROMIPLOSTIN 500 MCG SUBQ INJ; ROMPLOSTIN HELD ON 4/03/2012 + 4/10/2012 DUE TO INCREASED PLATELET COU
     Route: 058
     Dates: start: 20120327
  7. ROMIPLOSTIN 310 MCG SUBQ INJ ^057^ [Suspect]
     Indication: URINARY TRACT INFECTION
     Dosage: ROMIPLOSTIN 310 MCG SUBQ INJ ^057^
     Route: 058
     Dates: start: 20120228
  8. ROMIPLOSTIN 420 MCG SUBQ INJ ^057^ [Suspect]
     Dosage: ROMIPLOSTIN 420 MCG SUBQ INJ ^057^
     Route: 058
     Dates: start: 20120306
  9. ROMIPLOSTIN 500 MCG SUBQ INJ [Suspect]
     Dosage: ROMIPLOSTIN 500 MCG SUBQ INJ
     Route: 058
     Dates: start: 20120424

REACTIONS (4)
  - DIZZINESS [None]
  - ASTHENIA [None]
  - OEDEMA PERIPHERAL [None]
  - DYSPNOEA [None]
